FAERS Safety Report 24212207 (Version 1)
Quarter: 2024Q3

REPORT INFORMATION
  Report Type: Spontaneous
  Country: US (occurrence: US)
  Receive Date: 20240815
  Receipt Date: 20240815
  Transmission Date: 20241016
  Serious: No
  Sender: ROCHE
  Company Number: US-ROCHE-10000056581

PATIENT

DRUGS (1)
  1. VABYSMO [Suspect]
     Active Substance: FARICIMAB\FARICIMAB-SVOA
     Indication: Product used for unknown indication
     Route: 065

REACTIONS (2)
  - Dry eye [Unknown]
  - Eye haemorrhage [Unknown]
